FAERS Safety Report 24908874 (Version 2)
Quarter: 2025Q2

REPORT INFORMATION
  Report Type: Spontaneous
  Country: US (occurrence: US)
  Receive Date: 20250131
  Receipt Date: 20250623
  Transmission Date: 20250717
  Serious: No
  Sender: LEO PHARM
  Company Number: US-LEO Pharma-377259

PATIENT
  Sex: Male

DRUGS (1)
  1. ADBRY [Suspect]
     Active Substance: TRALOKINUMAB-LDRM
     Indication: Superficial inflammatory dermatosis
     Route: 058

REACTIONS (6)
  - Injection site swelling [Recovering/Resolving]
  - Injection site mass [Recovering/Resolving]
  - Injection site pain [Unknown]
  - Injection site erythema [Recovering/Resolving]
  - Injection site haemorrhage [Unknown]
  - Product use in unapproved indication [Unknown]
